FAERS Safety Report 7350756-3 (Version None)
Quarter: 2011Q1

REPORT INFORMATION
  Report Type: 
  Country: None (occurrence: None)
  Receive Date: 20110303
  Receipt Date: 20110221
  Transmission Date: 20110831
  Serious: Yes (Disabling)
  Sender: FDA-Public Use
  Company Number: CIP11000322

PATIENT
  Age: 84 Year
  Sex: Female
  Weight: 74 kg

DRUGS (7)
  1. LEVOTHYROXINE SODIUM [Concomitant]
  2. WARFARIN (WARFARIN) [Concomitant]
  3. OSTEVIT-D (COLECALCIFEROL) [Concomitant]
  4. DIGOXIN [Concomitant]
  5. ACTONEL WITH CALCIUM (COPACKAGED) [Suspect]
     Indication: OSTEOPOROSIS
     Dosage: 1 TABLET CYCLIC DAILY, ORAL
     Route: 048
     Dates: start: 20041129, end: 20110214
  6. ATENOLOL [Concomitant]
  7. ARMIMIDEX (ANASTROZOLE) [Concomitant]

REACTIONS (5)
  - HIATUS HERNIA [None]
  - OESOPHAGEAL SPASM [None]
  - GASTRITIS [None]
  - OESOPHAGEAL STENOSIS [None]
  - DYSPHAGIA [None]
